FAERS Safety Report 5654019-3 (Version None)
Quarter: 2008Q1

REPORT INFORMATION
  Report Type: 
  Country: None (occurrence: None)
  Receive Date: 20080206
  Receipt Date: 20070618
  Transmission Date: 20080703
  Serious: Yes (Hospitalization, Other)
  Sender: FDA-Public Use
  Company Number: US200705007102

PATIENT
  Sex: Female

DRUGS (4)
  1. EVISTA [Suspect]
     Dosage: 60 MG, ORAL
     Route: 048
     Dates: end: 20070308
  2. UNIRETIC (HYDROCHLOROTHIAZIDE, MOEXIPRIL, HYDROCHLORIDE) [Concomitant]
  3. CRESTOR [Concomitant]
  4. CALCIUM (CALCIUM) [Concomitant]

REACTIONS (2)
  - DEEP VEIN THROMBOSIS [None]
  - VENOUS STASIS [None]
